FAERS Safety Report 13270479 (Version 3)
Quarter: 2017Q1

REPORT INFORMATION
  Report Type: Spontaneous
  Country: US (occurrence: US)
  Receive Date: 20170224
  Receipt Date: 20170228
  Transmission Date: 20170428
  Serious: Yes (Other)
  Sender: FDA-Public Use
  Company Number: US-TEIKOKU PHARMA USA-TPU2017-00089

PATIENT
  Sex: Male

DRUGS (3)
  1. LIDOCAINE PATCH [Suspect]
     Active Substance: LIDOCAINE
     Indication: PRODUCT USED FOR UNKNOWN INDICATION
  2. UNSPECIFIED PATCHES [Suspect]
     Active Substance: UNSPECIFIED INGREDIENT
  3. FENTANYL. [Suspect]
     Active Substance: FENTANYL

REACTIONS (6)
  - Hallucination [Unknown]
  - Mood swings [Unknown]
  - Adverse reaction [Unknown]
  - Device adhesion issue [None]
  - Depressed level of consciousness [Unknown]
  - Dementia [Unknown]
